FAERS Safety Report 4413579-0 (Version None)
Quarter: 2004Q2

REPORT INFORMATION
  Report Type: 
  Country: None (occurrence: None)
  Receive Date: 20040630
  Receipt Date: 20040311
  Transmission Date: 20050107
  Serious: No
  Sender: FDA-Public Use
  Company Number: 04P-163-0253011-00

PATIENT
  Age: 56 Year
  Sex: Female
  Weight: 97.5234 kg

DRUGS (6)
  1. HUMIRA [Suspect]
     Indication: RHEUMATOID ARTHRITIS
     Dosage: 40 MG, 1 IN 2 WK, SUBCUTANEOUS
     Route: 058
     Dates: start: 20040114
  2. CELECOXIB [Concomitant]
  3. GABAPENTIN [Concomitant]
  4. CITALOPRAM HYDROBROMIDE [Concomitant]
  5. ZITIA [Concomitant]
  6. TRAZODONE HCL [Concomitant]

REACTIONS (4)
  - BLOOD PRESSURE INCREASED [None]
  - CYSTITIS [None]
  - DIZZINESS [None]
  - HEADACHE [None]
